FAERS Safety Report 5187536-3 (Version None)
Quarter: 2006Q4

REPORT INFORMATION
  Report Type: 
  Country: None (occurrence: None)
  Receive Date: 20061220
  Receipt Date: 20051228
  Transmission Date: 20070319
  Serious: No
  Sender: FDA-Public Use
  Company Number: US-AMGEN-US163004

PATIENT
  Sex: Female

DRUGS (4)
  1. ENBREL [Suspect]
     Indication: PSORIASIS
     Route: 058
     Dates: start: 20051121
  2. METHOTREXATE [Concomitant]
     Route: 048
     Dates: start: 20050310
  3. FOLIC ACID [Concomitant]
     Route: 065
     Dates: start: 20050602
  4. ORAL CONTRACEPTIVE NOS [Concomitant]
     Route: 048
     Dates: start: 20050602

REACTIONS (1)
  - DYSMENORRHOEA [None]
